FAERS Safety Report 6694823-6 (Version None)
Quarter: 2010Q2

REPORT INFORMATION
  Report Type: 
  Country: None (occurrence: None)
  Receive Date: 20100423
  Receipt Date: 20100415
  Transmission Date: 20101027
  Serious: Yes (Disabling)
  Sender: FDA-Public Use
  Company Number: BR-ABBOTT-09P-020-0600067-00

PATIENT
  Sex: Female
  Weight: 30 kg

DRUGS (5)
  1. HUMIRA [Suspect]
     Indication: MUSCULOSKELETAL PAIN
     Route: 058
     Dates: end: 20100301
  2. GARDENAL [Concomitant]
     Indication: SYNCOPE
     Route: 048
  3. HIDANTAL [Concomitant]
     Indication: SYNCOPE
     Route: 048
  4. UNKNOWN DRUG [Concomitant]
     Indication: MUSCULOSKELETAL PAIN
  5. UNKNOWN DRUG [Concomitant]
     Indication: PAIN

REACTIONS (4)
  - ABASIA [None]
  - FOOT DEFORMITY [None]
  - MUSCULOSKELETAL PAIN [None]
  - SKIN ULCER [None]
